FAERS Safety Report 5602907-6 (Version None)
Quarter: 2008Q1

REPORT INFORMATION
  Report Type: 
  Country: None (occurrence: None)
  Receive Date: 20080125
  Receipt Date: 20080125
  Transmission Date: 20080703
  Serious: No
  Sender: FDA-Public Use
  Company Number: US-BOEHRINGER INGELHEIM PHARMACEUTICALS, INC.-2007-BP-04824BP

PATIENT
  Age: 82 Year
  Sex: Female

DRUGS (5)
  1. AGGRENOX [Suspect]
     Indication: VARICOSE VEIN
     Route: 048
     Dates: start: 20070405, end: 20070406
  2. AGGRENOX [Suspect]
     Indication: PROPHYLAXIS
  3. UNSPECIFIED MEDICATION [Concomitant]
     Indication: MEMORY IMPAIRMENT
  4. ACTONEL [Concomitant]
     Indication: OSTEOPOROSIS
  5. NAMENDA [Concomitant]

REACTIONS (6)
  - DYSPNOEA [None]
  - FEELING ABNORMAL [None]
  - HEADACHE [None]
  - HYPOKINESIA [None]
  - PARAESTHESIA [None]
  - TINNITUS [None]
